FAERS Safety Report 8988525 (Version 3)
Quarter: 2013Q1

REPORT INFORMATION
  Report Type: Spontaneous
  Country: JP (occurrence: None)
  Receive Date: 20121218
  Receipt Date: 20130201
  Transmission Date: 20140127
  Serious: Yes (Other)
  Sender: FDA-Public Use
  Company Number: SPI201200325

PATIENT
  Age: 44 Year
  Sex: Female

DRUGS (1)
  1. AMITIZA [Suspect]
     Indication: CONSTIPATION
     Route: 048
     Dates: start: 20121122, end: 20121123

REACTIONS (6)
  - Hypersensitivity [None]
  - Dyspnoea [None]
  - Foreign body [None]
  - Cough [None]
  - Sensation of foreign body [None]
  - Nausea [None]
